FAERS Safety Report 4781720-6 (Version None)
Quarter: 2005Q3

REPORT INFORMATION
  Report Type: 
  Country: None (occurrence: None)
  Receive Date: 20050927
  Receipt Date: 20050914
  Transmission Date: 20060218
  Serious: Yes (Hospitalization, Other)
  Sender: FDA-Public Use
  Company Number: 2005128662

PATIENT
  Age: 60 Year
  Sex: Female

DRUGS (6)
  1. NEOSPORIN [Suspect]
     Indication: WOUND TREATMENT
     Dosage: TOPICAL
     Route: 061
     Dates: start: 20040109, end: 20040114
  2. POLYSPORIN OINTMENT [Suspect]
     Indication: WOUND TREATMENT
     Dosage: TOPICAO
     Route: 061
     Dates: start: 20040109, end: 20040114
  3. ATORVASTATIN (ATORVASTATIN) [Concomitant]
  4. ROFECOXIB [Concomitant]
  5. BENAZEPRIL HCL [Concomitant]
  6. OXYCODONE HYDROCHLORIDE AND ACETAMINOPHEN [Concomitant]

REACTIONS (8)
  - ERYTHEMA [None]
  - MASTITIS [None]
  - NECROSIS [None]
  - PAIN [None]
  - POST PROCEDURAL COMPLICATION [None]
  - SKIN GRAFT [None]
  - SKIN INFLAMMATION [None]
  - WOUND DRAINAGE [None]
